FAERS Safety Report 11190016 (Version 1)
Quarter: 2015Q2

REPORT INFORMATION
  Report Type: Spontaneous
  Country: US (occurrence: US)
  Receive Date: 20150615
  Receipt Date: 20150615
  Transmission Date: 20150821
  Serious: No
  Sender: FDA-Public Use
  Company Number: US-BAYER-2015-321033

PATIENT
  Age: 38 Year
  Sex: Male
  Weight: 86.17 kg

DRUGS (2)
  1. CLARITIN [Suspect]
     Active Substance: LORATADINE
     Indication: SEASONAL ALLERGY
     Dosage: UNK UNK, QID
     Route: 048
     Dates: start: 201505, end: 20150602
  2. CLARITIN [Suspect]
     Active Substance: LORATADINE
     Indication: SEASONAL ALLERGY
     Dosage: 1 DF, QD DAILY
     Route: 048
     Dates: start: 2012, end: 20150602

REACTIONS (4)
  - Fatigue [Recovered/Resolved]
  - Vertigo [Recovered/Resolved]
  - Head discomfort [Recovered/Resolved]
  - Incorrect dose administered [None]

NARRATIVE: CASE EVENT DATE: 201505
